FAERS Safety Report 8420603-7 (Version None)
Quarter: 2012Q2

REPORT INFORMATION
  Report Type: 
  Country: None (occurrence: None)
  Receive Date: 20120608
  Receipt Date: 20120531
  Transmission Date: 20120825
  Serious: No
  Sender: FDA-Public Use
  Company Number: US-BIOGENIDEC-2012BI019229

PATIENT
  Sex: Female

DRUGS (3)
  1. TYSABRI [Suspect]
     Indication: MULTIPLE SCLEROSIS
     Route: 042
     Dates: start: 20070516, end: 20080403
  2. TYSABRI [Suspect]
     Route: 042
     Dates: start: 20120524
  3. TYSABRI [Suspect]
     Route: 042
     Dates: start: 20081113, end: 20111109

REACTIONS (4)
  - MEMORY IMPAIRMENT [None]
  - CONFUSIONAL STATE [None]
  - LETHARGY [None]
  - FATIGUE [None]
